FAERS Safety Report 17070631 (Version 1)
Quarter: 2019Q4

REPORT INFORMATION
  Report Type: Spontaneous
  Country: CA (occurrence: CA)
  Receive Date: 20191125
  Receipt Date: 20191125
  Transmission Date: 20200122
  Serious: Yes (Other)
  Sender: FDA-Public Use
  Company Number: CA-PFIZER INC-2019505107

PATIENT
  Age: 117 Year
  Weight: 85.3 kg

DRUGS (3)
  1. METHOTREXATE SODIUM. [Suspect]
     Active Substance: METHOTREXATE SODIUM
     Dosage: UNK
  2. PREDNISONE. [Suspect]
     Active Substance: PREDNISONE
     Dosage: 40 MG TAPER
  3. AZATHIOPRINE. [Suspect]
     Active Substance: AZATHIOPRINE
     Dosage: UNK

REACTIONS (6)
  - Drug ineffective [Unknown]
  - Ileal perforation [Unknown]
  - Abdominal pain [Unknown]
  - Skin lesion [Unknown]
  - Condition aggravated [Unknown]
  - Intestinal obstruction [Unknown]
